FAERS Safety Report 4486647-5 (Version None)
Quarter: 2004Q4

REPORT INFORMATION
  Report Type: 
  Country: None (occurrence: None)
  Receive Date: 20041027
  Receipt Date: 20041018
  Transmission Date: 20050328
  Serious: Yes (Other)
  Sender: FDA-Public Use
  Company Number: 200420335GDDC

PATIENT
  Age: 50 Year
  Sex: Female

DRUGS (2)
  1. INDAPAMIDE [Suspect]
     Indication: ESSENTIAL HYPERTENSION
     Route: 048
     Dates: start: 20000901, end: 20011201
  2. FOSINOPRIL SODIUM [Concomitant]
     Dates: start: 20000901

REACTIONS (4)
  - BLOOD PRESSURE INCREASED [None]
  - BODY MASS INDEX INCREASED [None]
  - DIABETES MELLITUS [None]
  - HIGH DENSITY LIPOPROTEIN INCREASED [None]
